FAERS Safety Report 9255068 (Version 1)
Quarter: 2013Q2

REPORT INFORMATION
  Report Type: Spontaneous
  Country: NL (occurrence: None)
  Receive Date: 20130422
  Receipt Date: 20130422
  Transmission Date: 20140414
  Serious: Yes (Disabling)
  Sender: FDA-Public Use
  Company Number: SYM-2013-02879

PATIENT
  Age: 28 Year
  Sex: Male

DRUGS (2)
  1. TOPICORTE [Suspect]
     Indication: ECZEMA
     Dates: start: 20041104
  2. DAKTACORT [Suspect]
     Indication: ECZEMA

REACTIONS (4)
  - Application site reaction [None]
  - Post-traumatic stress disorder [None]
  - Pain [None]
  - Impaired work ability [None]
